FAERS Safety Report 9302537 (Version 1)
Quarter: 2013Q2

REPORT INFORMATION
  Report Type: Spontaneous
  Country: AU (occurrence: AU)
  Receive Date: 20130517
  Receipt Date: 20130517
  Transmission Date: 20140414
  Serious: Yes (Other)
  Sender: FDA-Public Use
  Company Number: 2013P1005825

PATIENT
  Age: 8 Year
  Sex: Male

DRUGS (1)
  1. HYDROCHLOROTHIAZIDE [Suspect]
     Indication: CONGENITAL NEPHROGENIC DIABETES INSIPIDUS

REACTIONS (3)
  - Congenital nephrogenic diabetes insipidus [None]
  - Lichenoid keratosis [None]
  - Hypersensitivity [None]
